FAERS Safety Report 9170395 (Version 7)
Quarter: 2013Q3

REPORT INFORMATION
  Report Type: Spontaneous
  Country: FR (occurrence: FR)
  Receive Date: 20130319
  Receipt Date: 20130701
  Transmission Date: 20140515
  Serious: Yes (Hospitalization, Other)
  Sender: FDA-Public Use
  Company Number: FR-JNJFOC-20130307476

PATIENT
  Age: 45 Year
  Sex: Female
  Weight: 100 kg

DRUGS (4)
  1. REMICADE [Suspect]
     Indication: ANKYLOSING SPONDYLITIS
     Route: 042
     Dates: start: 201204
  2. REMICADE [Suspect]
     Indication: ANKYLOSING SPONDYLITIS
     Route: 042
     Dates: start: 1999
  3. DUROGESIC [Concomitant]
     Indication: ANKYLOSING SPONDYLITIS
     Route: 065
     Dates: start: 1998
  4. XANAX [Concomitant]
     Dosage: 0.5 (UNITS UNSPECIFIED), 1-2 TIMES DAILY
     Route: 065
     Dates: start: 2006

REACTIONS (6)
  - Weight increased [Unknown]
  - Oedema [Recovered/Resolved]
  - Movement disorder [Unknown]
  - Off label use [Unknown]
  - Incorrect route of drug administration [Unknown]
  - Injection site pain [Unknown]
